FAERS Safety Report 17460104 (Version 1)
Quarter: 2020Q1

REPORT INFORMATION
  Report Type: Spontaneous
  Country: GB (occurrence: GB)
  Receive Date: 20200225
  Receipt Date: 20200225
  Transmission Date: 20200409
  Serious: Yes (Disabling, Other)
  Sender: FDA-Public Use
  Company Number: GB-ALLERGAN-1600462US

PATIENT
  Sex: Female

DRUGS (14)
  1. FOLIC ACID. [Concomitant]
     Active Substance: FOLIC ACID
  2. RAMIPRIL. [Concomitant]
     Active Substance: RAMIPRIL
  3. ISMN [Concomitant]
     Active Substance: ISOSORBIDE MONONITRATE
  4. SALAZOPYRIN [Concomitant]
     Active Substance: SULFASALAZINE
  5. MAXITROL [Suspect]
     Active Substance: DEXAMETHASONE\NEOMYCIN SULFATE\POLYMYXIN B SULFATE
     Indication: CATARACT OPERATION
     Dosage: UNK, QID
     Route: 061
     Dates: start: 20160119, end: 20160219
  6. ASPIRIN. [Concomitant]
     Active Substance: ASPIRIN
  7. CLOPIDOGREL [Concomitant]
     Active Substance: CLOPIDOGREL BISULFATE
  8. RANITIDINE. [Concomitant]
     Active Substance: RANITIDINE
  9. CALCICHEW [Concomitant]
     Active Substance: CALCIUM CARBONATE
  10. FERROUS FUMARATE [Concomitant]
     Active Substance: FERROUS FUMARATE
  11. HYDRALAZINE [Concomitant]
     Active Substance: HYDRALAZINE HYDROCHLORIDE
  12. LEVOTHYROXINE. [Concomitant]
     Active Substance: LEVOTHYROXINE
  13. CARVEDILOL. [Concomitant]
     Active Substance: CARVEDILOL
  14. ACULAR [Suspect]
     Active Substance: KETOROLAC TROMETHAMINE
     Indication: CATARACT OPERATION
     Dosage: UNK, TID
     Route: 047
     Dates: start: 20160119, end: 20160219

REACTIONS (9)
  - Ocular hyperaemia [Unknown]
  - Corneal disorder [Unknown]
  - Ulcerative keratitis [Not Recovered/Not Resolved]
  - Drug interaction [Unknown]
  - Corneal thinning [Unknown]
  - Product administration interrupted [Unknown]
  - Eye pain [Unknown]
  - Visual impairment [Unknown]
  - Corneal dystrophy [Unknown]

NARRATIVE: CASE EVENT DATE: 20160130
